FAERS Safety Report 4923990-7 (Version None)
Quarter: 2006Q1

REPORT INFORMATION
  Report Type: 
  Country: None (occurrence: None)
  Receive Date: 20060221
  Receipt Date: 20060209
  Transmission Date: 20060701
  Serious: Yes (Death)
  Sender: FDA-Public Use
  Company Number: 2006021054

PATIENT
  Sex: Male

DRUGS (3)
  1. ATORVASTATIN CALCIUM [Suspect]
     Indication: BLOOD CHOLESTEROL INCREASED
     Dosage: (20 MG, UNKNOWN), ORAL
     Route: 048
     Dates: start: 20050805, end: 20051010
  2. COMBIVIR [Concomitant]
  3. EFAVIRENZ [Concomitant]

REACTIONS (2)
  - CIRRHOSIS ALCOHOLIC [None]
  - HEPATIC FAILURE [None]
